FAERS Safety Report 17331564 (Version 4)
Quarter: 2020Q2

REPORT INFORMATION
  Report Type: Report from Study
  Country: FR (occurrence: FR)
  Receive Date: 20200128
  Receipt Date: 20200427
  Transmission Date: 20200713
  Serious: Yes (Hospitalization)
  Sender: FDA-Public Use
  Company Number: FR-JNJFOC-20200131371

PATIENT
  Age: 64 Year
  Sex: Male

DRUGS (9)
  1. DULOXETINE. [Concomitant]
     Active Substance: DULOXETINE
     Dates: start: 20200113
  2. SPRAVATO [Suspect]
     Active Substance: ESKETAMINE
     Dates: start: 20200221, end: 20200221
  3. SPRAVATO [Suspect]
     Active Substance: ESKETAMINE
     Dates: start: 20200217, end: 20200217
  4. QUETIAPINE ARROW [Concomitant]
     Active Substance: QUETIAPINE
  5. CRESTOR [Concomitant]
     Active Substance: ROSUVASTATIN CALCIUM
  6. SPRAVATO [Suspect]
     Active Substance: ESKETAMINE
     Indication: DEPRESSION
     Dates: start: 20200117, end: 20200117
  7. SPRAVATO [Suspect]
     Active Substance: ESKETAMINE
     Dates: start: 20200214, end: 20200214
  8. TAMSULOSINE ACTAVIS [Concomitant]
     Active Substance: TAMSULOSIN
  9. COVERSYL                           /00790702/ [Concomitant]
     Active Substance: PERINDOPRIL

REACTIONS (4)
  - Altered state of consciousness [Recovered/Resolved]
  - Hypertension [Recovered/Resolved]
  - Sedation [Unknown]
  - Dissociation [Recovered/Resolved]

NARRATIVE: CASE EVENT DATE: 20200117
